FAERS Safety Report 8805813 (Version 1)
Quarter: 2012Q4

REPORT INFORMATION
  Report Type: Spontaneous
  Country: GB (occurrence: None)
  Receive Date: 20120917
  Receipt Date: 20120917
  Transmission Date: 20130627
  Serious: Yes (Hospitalization)
  Sender: FDA-Public Use
  Company Number: IMP_05985_2012

PATIENT
  Age: 63 Year
  Sex: Male

DRUGS (14)
  1. METFORMIN [Suspect]
     Indication: PRODUCT USED FOR UNKNOWN INDICATION
  2. BENDROFLUAZIDE [Concomitant]
  3. DOXAZOSIN [Concomitant]
  4. NICARDIPINE [Concomitant]
  5. SIMVASTATIN [Concomitant]
  6. ALFENTANIL [Concomitant]
  7. PROPOFOL [Concomitant]
  8. CISATRACURIUM [Concomitant]
  9. ISOFLURANE [Concomitant]
  10. REMIFENTANIL [Concomitant]
  11. FRUSEMIDE /00032601/ [Concomitant]
  12. GLYCERYL TRINITRATE [Concomitant]
  13. PHENYLEPHRINE [Concomitant]
  14. BUPIVICAINE [Concomitant]

REACTIONS (3)
  - Multi-organ failure [None]
  - Lactic acidosis [None]
  - Metabolic acidosis [None]
